FAERS Safety Report 8031832-9 (Version None)
Quarter: 2012Q1

REPORT INFORMATION
  Report Type: 
  Country: None (occurrence: None)
  Receive Date: 20120109
  Receipt Date: 20120109
  Transmission Date: 20120608
  Serious: Yes (Hospitalization)
  Sender: FDA-Public Use
  Company Number: DE-ABBOTT-11P-062-0714027-00

PATIENT
  Sex: Female

DRUGS (1)
  1. HUMIRA [Suspect]
     Indication: CROHN'S DISEASE
     Route: 058
     Dates: start: 20070919, end: 20111101

REACTIONS (5)
  - DIARRHOEA [None]
  - CROHN'S DISEASE [None]
  - EMOTIONAL DISTRESS [None]
  - VOMITING [None]
  - DRUG INEFFECTIVE [None]
